FAERS Safety Report 18322845 (Version 1)
Quarter: 2020Q3

REPORT INFORMATION
  Report Type: Spontaneous
  Country: QA (occurrence: QA)
  Receive Date: 20200929
  Receipt Date: 20200929
  Transmission Date: 20201103
  Serious: Yes (Hospitalization)
  Sender: FDA-Public Use
  Company Number: QA-SUN PHARMACEUTICAL INDUSTRIES LTD-2020R1-262353

PATIENT
  Age: 33 Year
  Sex: Male

DRUGS (4)
  1. TRENBOLONE [Suspect]
     Active Substance: TRENBOLONE
     Indication: PHYSICAL FITNESS TRAINING
     Dosage: UNK 1 COURSE AS 100 TO 200MG DAILY FOR 90 DAYS
     Route: 065
     Dates: end: 201905
  2. TADALAFIL. [Concomitant]
     Active Substance: TADALAFIL
     Indication: ERECTILE DYSFUNCTION
     Dosage: UNK (20 MG)
     Route: 065
  3. TESTOSTERONE. [Suspect]
     Active Substance: TESTOSTERONE
     Indication: PHYSICAL FITNESS TRAINING
     Dosage: 1 COURSE AS 100 TO 200MG DAILY FOR 90 DAYS)
     Route: 065
     Dates: end: 201905
  4. METANDIENONE [Suspect]
     Active Substance: METHANDROSTENOLONE
     Indication: PRODUCT USED FOR UNKNOWN INDICATION
     Dosage: 20 MILLIGRAM, DAILY
     Route: 065

REACTIONS (1)
  - Delirium [Recovering/Resolving]
